FAERS Safety Report 6145455-X (Version None)
Quarter: 2009Q2

REPORT INFORMATION
  Report Type: 
  Country: None (occurrence: None)
  Receive Date: 20090406
  Receipt Date: 20090325
  Transmission Date: 20091009
  Serious: Yes (Other)
  Sender: FDA-Public Use
  Company Number: FR-ELI_LILLY_AND_COMPANY-FR200811005727

PATIENT
  Age: 74 Year
  Sex: Female
  Weight: 70 kg

DRUGS (4)
  1. FORTEO [Suspect]
     Indication: OSTEOPOROSIS
     Dosage: 20 UG, DAILY (1/D)
     Route: 058
     Dates: start: 20080527
  2. PLAQUENIL /00072601/ [Concomitant]
     Indication: RHEUMATOID ARTHRITIS
     Dosage: 1 D/F, DAILY (1/D)
     Route: 048
     Dates: start: 20050903
  3. EUPANTOL [Concomitant]
     Indication: RHEUMATOID ARTHRITIS
     Dosage: 1 D/F, DAILY (1/D)
     Route: 048
     Dates: start: 20050903
  4. FIXICAL [Concomitant]
     Indication: FRACTURE

REACTIONS (1)
  - HIP FRACTURE [None]
